FAERS Safety Report 4886079-1 (Version None)
Quarter: 2006Q1

REPORT INFORMATION
  Report Type: 
  Country: None (occurrence: None)
  Receive Date: 20060120
  Receipt Date: 20060112
  Transmission Date: 20060701
  Serious: Yes (Hospitalization)
  Sender: FDA-Public Use
  Company Number: GB-AVENTIS-200610249EU

PATIENT

DRUGS (1)
  1. CLEXANE [Suspect]

REACTIONS (1)
  - STAPHYLOCOCCAL INFECTION [None]
